FAERS Safety Report 10162702 (Version 1)
Quarter: 2014Q2

REPORT INFORMATION
  Report Type: Spontaneous
  Country: FR (occurrence: FR)
  Receive Date: 20140509
  Receipt Date: 20140509
  Transmission Date: 20141212
  Serious: Yes (Hospitalization)
  Sender: FDA-Public Use
  Company Number: FR-009507513-1405FRA002769

PATIENT
  Age: 87 Year
  Sex: Female

DRUGS (5)
  1. NORSET [Suspect]
     Dosage: 15 MG, QD
     Route: 048
     Dates: end: 20140328
  2. KARDEGIC [Suspect]
     Dosage: 75 MG, QD
     Route: 048
     Dates: end: 20140328
  3. MOPRAL (OMEPRAZOLE) [Suspect]
     Dosage: 20 MG, UNK
     Route: 048
     Dates: end: 20140328
  4. COVERAM [Suspect]
     Dosage: 10MG/5MG
     Route: 065
     Dates: end: 20140328
  5. XANAX [Concomitant]
     Dosage: 0.50 MG, QD
     Route: 048
     Dates: end: 20140328

REACTIONS (2)
  - Confusional state [Recovered/Resolved]
  - Hyperammonaemia [Recovered/Resolved]
